FAERS Safety Report 7282423-9 (Version None)
Quarter: 2011Q1

REPORT INFORMATION
  Report Type: 
  Country: None (occurrence: None)
  Receive Date: 20110125
  Receipt Date: 20110110
  Transmission Date: 20110831
  Serious: Yes (Death)
  Sender: FDA-Public Use
  Company Number: 025484

PATIENT
  Age: 27 Year
  Sex: Female

DRUGS (2)
  1. ALPRAZOLAM [Suspect]
  2. METHADONE [Suspect]

REACTIONS (2)
  - CARDIAC ARREST [None]
  - RESPIRATORY ARREST [None]
